FAERS Safety Report 24195135 (Version 1)
Quarter: 2024Q3

REPORT INFORMATION
  Report Type: Spontaneous
  Country: US (occurrence: US)
  Receive Date: 20240809
  Receipt Date: 20240809
  Transmission Date: 20241016
  Serious: No
  Sender: ANI
  Company Number: US-ANIPHARMA-2024-US-031018

PATIENT
  Sex: Female

DRUGS (27)
  1. CORTICOTROPIN [Suspect]
     Active Substance: CORTICOTROPIN
     Indication: Rheumatoid arthritis
     Dosage: 80 UNITS GIVEN SUBCUTANEOUS 2 TIMES PER A WEEK
     Route: 058
  2. OMEPRAZOLE [Concomitant]
     Active Substance: OMEPRAZOLE
  3. POTASSIUM [Concomitant]
     Active Substance: POTASSIUM
  4. ACETAMINOPHEN\HYDROCODONE [Concomitant]
     Active Substance: ACETAMINOPHEN\HYDROCODONE
  5. LYSINE [Concomitant]
     Active Substance: LYSINE
  6. GLUCOSAMINE SULFATE [Concomitant]
     Active Substance: GLUCOSAMINE SULFATE
  7. PROAIR RESPICLICK [Concomitant]
     Active Substance: ALBUTEROL SULFATE
  8. FISH OIL [Concomitant]
     Active Substance: FISH OIL
  9. WOMENS HAIR, SKIN + NAILS [Concomitant]
  10. VALTREX [Concomitant]
     Active Substance: VALACYCLOVIR HYDROCHLORIDE
  11. ROSUVASTATIN CALCIUM [Concomitant]
     Active Substance: ROSUVASTATIN CALCIUM
  12. FLUCONAZOLE [Concomitant]
     Active Substance: FLUCONAZOLE
  13. MELOXICAM [Concomitant]
     Active Substance: MELOXICAM
  14. CALCIUM\VITAMIN D [Concomitant]
     Active Substance: CALCIUM\VITAMIN D
  15. TRELEGY ELLIPTA [Concomitant]
     Active Substance: FLUTICASONE FUROATE\UMECLIDINIUM BROMIDE\VILANTEROL TRIFENATATE
  16. FOLIC ACID [Concomitant]
     Active Substance: FOLIC ACID
  17. MUCINEX MAXIMUM STRENGTH [Concomitant]
     Active Substance: GUAIFENESIN
  18. SAVELLA [Concomitant]
     Active Substance: MILNACIPRAN HYDROCHLORIDE
  19. VITAMIN C [Concomitant]
     Active Substance: ASCORBIC ACID
  20. CENTRUM SILVER 50+WOMEN [Concomitant]
  21. CIMZIA [Concomitant]
     Active Substance: CERTOLIZUMAB PEGOL
  22. PROBIOTICS NOS [Concomitant]
     Active Substance: PROBIOTICS NOS
  23. PROLIA [Concomitant]
     Active Substance: DENOSUMAB
  24. PLAQUENIL [Concomitant]
     Active Substance: HYDROXYCHLOROQUINE SULFATE
  25. LYRICA [Concomitant]
     Active Substance: PREGABALIN
  26. PREDNISONE [Concomitant]
     Active Substance: PREDNISONE
  27. METHOCARBAMOL [Concomitant]
     Active Substance: METHOCARBAMOL

REACTIONS (3)
  - Arthralgia [Unknown]
  - Arthropathy [Unknown]
  - Candida infection [Unknown]
